FAERS Safety Report 8679824 (Version 2)
Quarter: 2012Q4

REPORT INFORMATION
  Report Type: 
  Country: VE (occurrence: VE)
  Receive Date: 20120724
  Receipt Date: 20121024
  Transmission Date: 20130627
  Serious: Yes (Hospitalization, Other)
  Sender: FDA-Public Use
  Company Number: VE-ELI_LILLY_AND_COMPANY-VE201207006807

PATIENT

DRUGS (2)
  1. HUMALOG [Suspect]
     Indication: GESTATIONAL DIABETES
     Dosage: 10 IU, bid
     Route: 015
     Dates: start: 20120229, end: 20120302
  2. ANTIBIOTICS [Concomitant]
     Indication: URINARY TRACT INFECTION
     Route: 015

REACTIONS (4)
  - Premature baby [Unknown]
  - Hypoxia [Unknown]
  - Convulsion neonatal [Unknown]
  - Foetal exposure during pregnancy [Recovered/Resolved]
